FAERS Safety Report 18932017 (Version 1)
Quarter: 2021Q1

REPORT INFORMATION
  Report Type: Spontaneous
  Country: US (occurrence: US)
  Receive Date: 20210223
  Receipt Date: 20210223
  Transmission Date: 20210420
  Serious: No
  Sender: FDA-Public Use
  Company Number: US-ROCHE-2759918

PATIENT
  Sex: Male
  Weight: 43.2 kg

DRUGS (1)
  1. EVRYSDI [Suspect]
     Active Substance: RISDIPLAM
     Indication: PRODUCT USED FOR UNKNOWN INDICATION
     Dosage: 0.75 MG/ML 80 ML
     Route: 048
     Dates: start: 20210116

REACTIONS (3)
  - Fall [Unknown]
  - Asthenia [Unknown]
  - Ill-defined disorder [Unknown]
